FAERS Safety Report 13937781 (Version 1)
Quarter: 2017Q3

REPORT INFORMATION
  Report Type: Spontaneous
  Country: FR (occurrence: FR)
  Receive Date: 20170905
  Receipt Date: 20170905
  Transmission Date: 20171127
  Serious: Yes (Death, Hospitalization)
  Sender: FDA-Public Use
  Company Number: FR-EXELIXIS-CABO-17010358

PATIENT
  Age: 64 Year
  Sex: Male

DRUGS (6)
  1. LOPERAMIDE [Concomitant]
     Active Substance: LOPERAMIDE
  2. CABOMETYX [Suspect]
     Active Substance: CABOZANTINIB S-MALATE
     Indication: RENAL CANCER
     Dosage: 40 MG, QD
     Route: 048
     Dates: start: 201703, end: 20170709
  3. IMOVANE [Concomitant]
     Active Substance: ZOPICLONE
  4. CORTANCYL [Suspect]
     Active Substance: PREDNISONE
     Indication: PRODUCT USED FOR UNKNOWN INDICATION
     Dosage: 60 MG, UNK
     Route: 048
     Dates: start: 2017, end: 20170710
  5. LEVOTHYROX [Concomitant]
     Active Substance: LEVOTHYROXINE
  6. FONX [Concomitant]

REACTIONS (11)
  - General physical health deterioration [Fatal]
  - Rash [Unknown]
  - Weight decreased [Unknown]
  - Bacterial sepsis [Fatal]
  - Cellulitis [Fatal]
  - Dehydration [Unknown]
  - Acute kidney injury [Fatal]
  - Oedema peripheral [Unknown]
  - Septic shock [Fatal]
  - Malnutrition [Unknown]
  - Diarrhoea [Unknown]

NARRATIVE: CASE EVENT DATE: 20170622
